FAERS Safety Report 5754278-2 (Version None)
Quarter: 2008Q2

REPORT INFORMATION
  Report Type: 
  Country: None (occurrence: None)
  Receive Date: 20080530
  Receipt Date: 20080522
  Transmission Date: 20081010
  Serious: Yes (Other)
  Sender: FDA-Public Use
  Company Number: BR-ROCHE-566756

PATIENT
  Sex: Female

DRUGS (1)
  1. XENICAL [Suspect]
     Indication: WEIGHT CONTROL
     Route: 065
     Dates: start: 19990101, end: 19990101

REACTIONS (2)
  - BREAST CANCER [None]
  - WEIGHT INCREASED [None]
